FAERS Safety Report 6560073-7 (Version None)
Quarter: 2010Q1

REPORT INFORMATION
  Report Type: 
  Country: None (occurrence: None)
  Receive Date: 20100129
  Receipt Date: 20090915
  Transmission Date: 20100710
  Serious: No
  Sender: FDA-Public Use
  Company Number: US-ABBOTT-09P-163-0598186-00

PATIENT
  Sex: Female

DRUGS (3)
  1. HUMIRA [Suspect]
     Indication: PSORIASIS
     Route: 058
     Dates: start: 20081101, end: 20081101
  2. HUMIRA [Suspect]
     Route: 058
     Dates: start: 20081101, end: 20090501
  3. HUMIRA [Suspect]
     Route: 058
     Dates: start: 20090701

REACTIONS (3)
  - INCORRECT DOSE ADMINISTERED [None]
  - PARAESTHESIA [None]
  - PSORIASIS [None]
